FAERS Safety Report 17312685 (Version 1)
Quarter: 2020Q1

REPORT INFORMATION
  Report Type: Spontaneous
  Country: US (occurrence: US)
  Receive Date: 20200107
  Receipt Date: 20200107
  Transmission Date: 20200409
  Serious: No
  Sender: FDA-Public Use
  Company Number: None

PATIENT
  Age: 73 Year
  Sex: Female
  Weight: 70.31 kg

DRUGS (1)
  1. PROLIA [Suspect]
     Active Substance: DENOSUMAB
     Dosage: ?          OTHER FREQUENCY:6 MO.;?
     Dates: start: 201904, end: 201910

REACTIONS (5)
  - Neuropathy peripheral [None]
  - Autoimmune disorder [None]
  - Gait disturbance [None]
  - Insomnia [None]
  - Pain in extremity [None]

NARRATIVE: CASE EVENT DATE: 20190404
